FAERS Safety Report 20000688 (Version 1)
Quarter: 2021Q4

REPORT INFORMATION
  Report Type: Spontaneous
  Country: US (occurrence: US)
  Receive Date: 20211027
  Receipt Date: 20211027
  Transmission Date: 20220303
  Serious: No
  Sender: FDA-Public Use
  Company Number: US-AMGEN-USASP2021161272

PATIENT
  Age: 49 Year
  Sex: Female

DRUGS (3)
  1. ENBREL [Suspect]
     Active Substance: ETANERCEPT
     Indication: Psoriasis
     Dosage: UNK
     Route: 065
     Dates: start: 2004, end: 2007
  2. OTEZLA [Suspect]
     Active Substance: APREMILAST
     Indication: Psoriasis
     Dosage: UNK
     Route: 065
  3. OTEZLA [Suspect]
     Active Substance: APREMILAST
     Dosage: UNK (HALF A DOSE)
     Route: 065
     Dates: start: 20211014

REACTIONS (4)
  - Arthralgia [Unknown]
  - Intentional product misuse [Unknown]
  - Abdominal discomfort [Unknown]
  - Psoriasis [Unknown]

NARRATIVE: CASE EVENT DATE: 20211001
